FAERS Safety Report 14287031 (Version 1)
Quarter: 2017Q4

REPORT INFORMATION
  Report Type: Spontaneous
  Country: US (occurrence: US)
  Receive Date: 20171214
  Receipt Date: 20171214
  Transmission Date: 20180321
  Serious: No
  Sender: FDA-Public Use
  Company Number: US-ASTELLAS-2017US035326

PATIENT
  Sex: Female

DRUGS (2)
  1. IMODIUM A-D [Concomitant]
     Active Substance: LOPERAMIDE HYDROCHLORIDE
     Indication: PRODUCT USED FOR UNKNOWN INDICATION
     Route: 065
  2. TARCEVA [Suspect]
     Active Substance: ERLOTINIB HYDROCHLORIDE
     Indication: METASTASES TO LUNG
     Dosage: 150 MG, ONCE DAILY (MORNING BEFORE BREAKFAST ON EMPTY STOMACH)
     Route: 048

REACTIONS (2)
  - Diarrhoea [Not Recovered/Not Resolved]
  - Hair growth abnormal [Not Recovered/Not Resolved]
